FAERS Safety Report 8603081-4 (Version None)
Quarter: 2012Q3

REPORT INFORMATION
  Report Type: 
  Country: None (occurrence: None)
  Receive Date: 20120817
  Receipt Date: 20120813
  Transmission Date: 20120928
  Serious: Yes (Hospitalization, Other)
  Sender: FDA-Public Use
  Company Number: PHHO2012IL011851

PATIENT
  Sex: Male

DRUGS (11)
  1. METFORMIN HYDROCHLORIDE [Concomitant]
     Indication: TYPE 2 DIABETES MELLITUS
     Dosage: 1700 MG, UNK
  2. BETA BLOCKING AGENTS [Concomitant]
  3. METOPROLOL TARTRATE [Suspect]
     Dosage: 200 MG, UNK
  4. METOPROLOL TARTRATE [Suspect]
     Dosage: 100 MG, UNK
  5. ENOXAPARIN [Concomitant]
     Dosage: UNK
     Dates: start: 20120316, end: 20120320
  6. TEGRETOL [Concomitant]
     Dosage: UNK
     Dates: start: 20111023
  7. LANTUS [Concomitant]
     Indication: TYPE 2 DIABETES MELLITUS
     Dosage: 50 IU, UNK
  8. ASPIRIN [Concomitant]
  9. ANGIOTENSIN CONVERTING ENZYME BLOCKERS [Concomitant]
  10. ADENOSINE DIPHOSPHATE [Concomitant]
  11. APIDRA [Concomitant]
     Indication: TYPE 2 DIABETES MELLITUS
     Dosage: 60 IU, UNK

REACTIONS (3)
  - ANGINA PECTORIS [None]
  - BRADYCARDIA [None]
  - NON-CARDIAC CHEST PAIN [None]
